FAERS Safety Report 25904641 (Version 1)
Quarter: 2025Q4

REPORT INFORMATION
  Report Type: Spontaneous
  Country: JP (occurrence: JP)
  Receive Date: 20251010
  Receipt Date: 20251010
  Transmission Date: 20260117
  Serious: Yes (Other)
  Sender: Vantive US Healthcare
  Company Number: JP-VANTIVE-2025VAN004480

PATIENT
  Sex: Female

DRUGS (4)
  1. REGUNEAL LCA [Suspect]
     Active Substance: CALCIUM CHLORIDE\DEXTROSE MONOHYDRATE\HYDROCHLORIC ACID\MAGNESIUM CHLORIDE\SODIUM BICARBONATE\SODIUM
     Dosage: 1.5L
     Route: 033
  2. EXTRANEAL [Suspect]
     Active Substance: CALCIUM CHLORIDE\ICODEXTRIN\MAGNESIUM CHLORIDE\SODIUM CHLORIDE\SODIUM LACTATE
     Dosage: 1.5L
     Route: 033
  3. LOSARTAN [Concomitant]
     Active Substance: LOSARTAN
     Indication: Hypertension
     Dosage: 50MG PER DAY
     Route: 048
  4. CALCIUM CARBONATE\CHOLECALCIFEROL\MAGNESIUM CARBONATE [Concomitant]
     Active Substance: CALCIUM CARBONATE\CHOLECALCIFEROL\MAGNESIUM CARBONATE
     Indication: Hypocalcaemia
     Route: 048

REACTIONS (6)
  - Urinary retention [Recovered/Resolved]
  - Hypocalcaemia [Unknown]
  - Condition aggravated [Unknown]
  - Feeding disorder [Unknown]
  - Physical deconditioning [Unknown]
  - Vomiting [Recovered/Resolved]
